FAERS Safety Report 16817119 (Version 1)
Quarter: 2019Q3

REPORT INFORMATION
  Report Type: Spontaneous
  Country: US (occurrence: US)
  Receive Date: 20190917
  Receipt Date: 20190917
  Transmission Date: 20191005
  Serious: Yes (Death, Life-Threatening, Hospitalization, Other)
  Sender: FDA-Public Use
  Company Number: US-HIKMA PHARMACEUTICALS USA INC.-US-H14001-19-04833

PATIENT
  Age: 32 Year
  Sex: Male

DRUGS (3)
  1. ETANOL [Suspect]
     Active Substance: ALCOHOL
     Indication: SUICIDE ATTEMPT
     Route: 065
  2. METOPROLOL SUCCINATE 100 MG [Suspect]
     Active Substance: METOPROLOL SUCCINATE
     Indication: SUICIDE ATTEMPT
     Dosage: UNKNOWN AMOUNT ()
     Route: 048
  3. FLECAINIDE 100 MG [Suspect]
     Active Substance: FLECAINIDE
     Indication: SUICIDE ATTEMPT
     Dosage: 30 TABLETS ; IN TOTAL
     Route: 048

REACTIONS (8)
  - Hypotension [Fatal]
  - Shock [Fatal]
  - Cardiogenic shock [Fatal]
  - Electrocardiogram QRS complex prolonged [Fatal]
  - Unresponsive to stimuli [Fatal]
  - Intentional overdose [Fatal]
  - Cardiac arrest [Fatal]
  - Ventricular fibrillation [Fatal]
